FAERS Safety Report 4480415-6 (Version None)
Quarter: 2004Q4

REPORT INFORMATION
  Report Type: 
  Country: None (occurrence: None)
  Receive Date: 20041018
  Receipt Date: 20040930
  Transmission Date: 20050328
  Serious: Yes (Disabling)
  Sender: FDA-Public Use
  Company Number: 8006260

PATIENT
  Age: 80 Year
  Sex: Male

DRUGS (14)
  1. KEPPRA [Suspect]
     Indication: CONVULSION
     Dosage: 125 MG 2/D PO
     Route: 048
     Dates: start: 20021023
  2. KEPPRA [Suspect]
     Indication: CONVULSION
     Dosage: 1500 MG 2/D PO
     Route: 048
     Dates: start: 20021201, end: 20031101
  3. KEPPRA [Suspect]
     Indication: CONVULSION
     Dosage: 750 MG 2/D PO
     Route: 048
     Dates: start: 20031101
  4. AGGRENOX [Concomitant]
  5. ZOCOR [Concomitant]
  6. FLOMAX [Concomitant]
  7. BUMEX [Concomitant]
  8. VITAMIN E [Concomitant]
  9. VITAMIN C [Concomitant]
  10. PROSCAR [Concomitant]
  11. TIMOLOL MALEATE [Concomitant]
  12. NITROPASTE [Concomitant]
  13. ATENOLOL [Concomitant]
  14. MULTI-VITAMINS [Concomitant]

REACTIONS (6)
  - BLINDNESS [None]
  - CEREBRAL ARTERY EMBOLISM [None]
  - CEREBRAL ISCHAEMIA [None]
  - CEREBROVASCULAR ACCIDENT [None]
  - ELECTROENCEPHALOGRAM ABNORMAL [None]
  - PROSTATE CANCER [None]
